FAERS Safety Report 6029069-8 (Version None)
Quarter: 2008Q4

REPORT INFORMATION
  Report Type: 
  Country: None (occurrence: None)
  Receive Date: 20081231
  Receipt Date: 20081216
  Transmission Date: 20090506
  Serious: Yes (Hospitalization)
  Sender: FDA-Public Use
  Company Number: 2008S1022411

PATIENT
  Age: 50 Year
  Sex: Female

DRUGS (1)
  1. DOXYLIN (DOXYCYCLINE) (50 MG) [Suspect]
     Indication: ROSACEA
     Dosage: 100 MG; ONCE; ORAL
     Route: 048
     Dates: start: 20081108, end: 20081108

REACTIONS (4)
  - ABDOMINAL DISTENSION [None]
  - AUTOIMMUNE DISORDER [None]
  - GASTROINTESTINAL INFLAMMATION [None]
  - PYREXIA [None]
